FAERS Safety Report 7243681-X (Version None)
Quarter: 2011Q1

REPORT INFORMATION
  Report Type: 
  Country: None (occurrence: None)
  Receive Date: 20110125
  Receipt Date: 20110122
  Transmission Date: 20110831
  Serious: Yes (Death)
  Sender: FDA-Public Use
  Company Number: PHHY2011US05189

PATIENT
  Sex: Female

DRUGS (18)
  1. ADVAIR [Concomitant]
  2. DIAZEPAM [Concomitant]
  3. POTASSIUM [Concomitant]
  4. DARVOCET [Concomitant]
  5. NEXIUM [Concomitant]
  6. RECLAST [Suspect]
  7. ASPIRIN [Concomitant]
  8. PRANDIN [Concomitant]
  9. TRAMADOL [Concomitant]
  10. CARDIZEM [Concomitant]
  11. LASIX [Concomitant]
  12. METOPROLOL [Concomitant]
  13. MUCINEX [Concomitant]
  14. ACTOS [Concomitant]
  15. ALDACTONE [Concomitant]
  16. ALLOPURINOL [Concomitant]
  17. PRAVACHOL [Concomitant]
  18. ZANTAC [Concomitant]

REACTIONS (1)
  - DEATH [None]
